FAERS Safety Report 10249552 (Version 1)
Quarter: 2014Q2

REPORT INFORMATION
  Report Type: Spontaneous
  Country: CN (occurrence: CN)
  Receive Date: 20140620
  Receipt Date: 20140620
  Transmission Date: 20141212
  Serious: Yes (Hospitalization)
  Sender: FDA-Public Use
  Company Number: CN-ELI_LILLY_AND_COMPANY-CN201406006271

PATIENT
  Sex: Male
  Weight: 10 kg

DRUGS (1)
  1. CEFACLOR [Suspect]
     Indication: LARYNGITIS
     Dosage: 65 MG, BID
     Route: 048
     Dates: start: 20131006, end: 20131007

REACTIONS (2)
  - Dysphonia [Recovering/Resolving]
  - Hepatic enzyme increased [Recovering/Resolving]
